FAERS Safety Report 21365454 (Version 2)
Quarter: 2022Q4

REPORT INFORMATION
  Report Type: Spontaneous
  Country: US (occurrence: US)
  Receive Date: 20220922
  Receipt Date: 20221007
  Transmission Date: 20230113
  Serious: Yes (Death, Hospitalization)
  Sender: FDA-Public Use
  Company Number: US-TEVA-2022-US-2074193

PATIENT
  Age: 26 Year
  Sex: Female

DRUGS (1)
  1. WARFARIN [Suspect]
     Active Substance: WARFARIN
     Indication: Anticoagulant therapy
     Dosage: NONCOMPLIANT TO TREATMENT
     Route: 065

REACTIONS (3)
  - Hypercoagulation [Fatal]
  - Rebound effect [Fatal]
  - Treatment noncompliance [Fatal]
